FAERS Safety Report 10388946 (Version 1)
Quarter: 2014Q1

REPORT INFORMATION
  Report Type: Spontaneous
  Country: US (occurrence: None)
  Receive Date: 20140306
  Receipt Date: 20140306
  Transmission Date: 20141002
  Serious: Yes (Other)
  Sender: FDA-Public Use
  Company Number: 163-21880-13115260

PATIENT
  Age: 70 Year
  Sex: Female
  Weight: 67.1 kg

DRUGS (5)
  1. REVLIMID (LENALIDOMIDE) (CAPSULES) [Suspect]
     Indication: AMYLOIDOSIS
     Route: 048
     Dates: start: 20130620, end: 20131119
  2. HYDROCHLOROTHIAZIDE [Concomitant]
  3. NORTRIPTYLINE [Concomitant]
  4. PREGABALIN [Concomitant]
  5. ZOLPIDEM [Concomitant]

REACTIONS (3)
  - Pancytopenia [None]
  - Amyloidosis [None]
  - Disease progression [None]
